FAERS Safety Report 10235621 (Version 1)
Quarter: 2014Q1

REPORT INFORMATION
  Report Type: Spontaneous
  Country: US (occurrence: None)
  Receive Date: 20140306
  Receipt Date: 20140306
  Transmission Date: 20141002
  Serious: Yes (Other)
  Sender: FDA-Public Use
  Company Number: 163-21880-13014594

PATIENT
  Age: 87 Year
  Sex: Male

DRUGS (3)
  1. REVLIMID (LENALIDOMIDE) (10 MILLIGRAM, CAPSULES) [Suspect]
     Indication: PLASMA CELL MYELOMA
     Route: 048
     Dates: start: 201101
  2. PREDNISONE (PREDNISONE) (UNKNOWN) [Suspect]
     Indication: PRODUCT USED FOR UNKNOWN INDICATION
  3. GABAPENTIN (GABAPENTIN) [Concomitant]

REACTIONS (5)
  - Haemorrhagic diathesis [None]
  - Skin atrophy [None]
  - Musculoskeletal pain [None]
  - Arthralgia [None]
  - Fatigue [None]
